FAERS Safety Report 22367104 (Version 1)
Quarter: 2023Q2

REPORT INFORMATION
  Report Type: Report from Study
  Country: US (occurrence: US)
  Receive Date: 20230525
  Receipt Date: 20230525
  Transmission Date: 20230722
  Serious: Yes (Other)
  Sender: FDA-Public Use
  Company Number: US-MYLANLABS-2023M1053289

PATIENT
  Age: 76 Year
  Sex: Female
  Weight: 112 kg

DRUGS (4)
  1. TORSEMIDE [Suspect]
     Active Substance: TORSEMIDE
     Indication: Swelling
     Dosage: UNK
     Route: 065
     Dates: end: 202305
  2. TYVASO [Suspect]
     Active Substance: TREPROSTINIL
     Indication: Pulmonary arterial hypertension
     Dosage: 36 MICROGRAM, QID ( 36 MICROGRAM (6 BREATHS) QID),  INHALATION DEVICE
     Route: 055
     Dates: start: 20230328
  3. FUROSEMIDE [Suspect]
     Active Substance: FUROSEMIDE
     Indication: Swelling
     Dosage: UNK
     Route: 065
  4. AMLODIPINE [Concomitant]
     Active Substance: AMLODIPINE BESYLATE
     Dosage: UNK
     Route: 065

REACTIONS (10)
  - Anuria [Recovered/Resolved]
  - Renal function test abnormal [Unknown]
  - Cough [Unknown]
  - Pain in extremity [Recovered/Resolved]
  - Arthralgia [Recovered/Resolved]
  - Swelling [Unknown]
  - Therapy partial responder [Unknown]
  - Dyspnoea [Recovering/Resolving]
  - Hyperactive pharyngeal reflex [Unknown]
  - Blood creatinine increased [Recovering/Resolving]

NARRATIVE: CASE EVENT DATE: 20230501
